FAERS Safety Report 8832047 (Version 2)
Quarter: 2013Q2

REPORT INFORMATION
  Report Type: Spontaneous
  Country: US (occurrence: US)
  Receive Date: 20121009
  Receipt Date: 20130607
  Transmission Date: 20140414
  Serious: No
  Sender: FDA-Public Use
  Company Number: US-PFIZER INC-2012247771

PATIENT
  Age: 62 Year
  Sex: Female
  Weight: 111 kg

DRUGS (7)
  1. ARTHROTEC [Suspect]
     Indication: ARTHRITIS
     Dosage: 75/0.2 MG, 2X/DAY
     Route: 048
     Dates: end: 201210
  2. ARTHROTEC [Suspect]
     Dosage: 0.2/75 MG, 2X/DAY
     Route: 048
     Dates: end: 201303
  3. ASPIRIN [Concomitant]
     Dosage: 81 MG, 1X/DAY
  4. LYRICA [Concomitant]
     Indication: NEUROPATHY PERIPHERAL
     Dosage: 75 MG, UNK
  5. METFORMIN [Concomitant]
     Indication: DIABETES MELLITUS
     Dosage: 1000 MG, 2X/DAY
  6. LISINOPRIL W/HYDROCHLOROTHIAZIDE [Concomitant]
     Indication: HYPERTENSION
     Dosage: 20/25 MG, 1X/DAY
  7. AMLODIPINE [Concomitant]
     Indication: HYPERTENSION
     Dosage: 10 MG, UNK

REACTIONS (2)
  - White blood cell count increased [Unknown]
  - Drug ineffective [Unknown]
